FAERS Safety Report 10070645 (Version 1)
Quarter: 2014Q2

REPORT INFORMATION
  Report Type: Report from Study
  Country: US (occurrence: US)
  Receive Date: 20140410
  Receipt Date: 20140410
  Transmission Date: 20141212
  Serious: Yes (Hospitalization, Other)
  Sender: FDA-Public Use
  Company Number: US-JNJFOC-20140403929

PATIENT
  Sex: Female
  Weight: 104.33 kg

DRUGS (4)
  1. REMICADE [Suspect]
     Indication: RHEUMATOID ARTHRITIS
     Route: 042
     Dates: end: 201309
  2. METHOTREXATE [Concomitant]
     Indication: RHEUMATOID ARTHRITIS
     Route: 030
     Dates: end: 201309
  3. HYDROXYCHLOROQUINE [Concomitant]
     Route: 048
  4. FOLIC ACID [Concomitant]
     Indication: RHEUMATOID ARTHRITIS
     Route: 048

REACTIONS (9)
  - Uterine cancer [Recovered/Resolved]
  - Bone disorder [Recovered/Resolved]
  - Ovarian neoplasm [Recovered/Resolved]
  - Chondropathy [Recovered/Resolved]
  - Clostridium difficile infection [Recovered/Resolved]
  - Meniscus injury [Recovered/Resolved]
  - Abnormal loss of weight [Not Recovered/Not Resolved]
  - Fall [Recovered/Resolved]
  - Sedation [Recovered/Resolved]
